FAERS Safety Report 7673388-6 (Version None)
Quarter: 2011Q3

REPORT INFORMATION
  Report Type: 
  Country: None (occurrence: None)
  Receive Date: 20110810
  Receipt Date: 20110801
  Transmission Date: 20111222
  Serious: Yes (Hospitalization, Other)
  Sender: FDA-Public Use
  Company Number: US-JNJFOC-20101102268

PATIENT
  Sex: Male
  Weight: 31.5 kg

DRUGS (2)
  1. INFLIXIMAB, RECOMBINANT [Suspect]
     Indication: INFLAMMATORY BOWEL DISEASE
     Dosage: TOTAL 20 DOSES
     Route: 042
     Dates: start: 20070112, end: 20090709
  2. HUMIRA [Concomitant]

REACTIONS (1)
  - CROHN'S DISEASE [None]
